FAERS Safety Report 11661698 (Version 1)
Quarter: 2015Q4

REPORT INFORMATION
  Report Type: Spontaneous
  Country: US (occurrence: US)
  Receive Date: 20151026
  Receipt Date: 20151026
  Transmission Date: 20160304
  Serious: Yes (Disabling, Other)
  Sender: FDA-Public Use
  Company Number: US-BAYER-2015-446565

PATIENT

DRUGS (1)
  1. CIPRO [Suspect]
     Active Substance: CIPROFLOXACIN HYDROCHLORIDE
     Indication: SINUSITIS

REACTIONS (25)
  - Activities of daily living impaired [Not Recovered/Not Resolved]
  - Exostosis [Recovering/Resolving]
  - Cerebral disorder [Recovering/Resolving]
  - Muscle spasms [Recovering/Resolving]
  - Anxiety [Recovering/Resolving]
  - Peripheral sensory neuropathy [None]
  - Connective tissue disorder [None]
  - Amnesia [Recovering/Resolving]
  - Confusional state [Recovering/Resolving]
  - Mental impairment [Recovering/Resolving]
  - Hyperaesthesia [Recovering/Resolving]
  - Hypoaesthesia [Recovering/Resolving]
  - Fibromyalgia [None]
  - Muscular weakness [Recovering/Resolving]
  - Motor dysfunction [Recovering/Resolving]
  - Immune system disorder [Recovering/Resolving]
  - Thrombosis [Recovering/Resolving]
  - Cognitive disorder [Recovering/Resolving]
  - Paralysis [Recovering/Resolving]
  - Pain [Recovering/Resolving]
  - Tendon rupture [Recovering/Resolving]
  - Tinnitus [Recovering/Resolving]
  - Inflammation [Recovering/Resolving]
  - Fatigue [Recovering/Resolving]
  - Cardiovascular disorder [Recovering/Resolving]
